FAERS Safety Report 21160200 (Version 3)
Quarter: 2022Q3

REPORT INFORMATION
  Report Type: Spontaneous
  Country: FR (occurrence: FR)
  Receive Date: 20220802
  Receipt Date: 20220916
  Transmission Date: 20221026
  Serious: Yes (Other)
  Sender: FDA-Public Use
  Company Number: None

PATIENT
  Age: 88 Year
  Sex: Male
  Weight: 67 kg

DRUGS (4)
  1. CAYSTON [Suspect]
     Active Substance: AZTREONAM
     Indication: Bacteraemia
     Route: 065
  2. AZTREONAM [Concomitant]
     Active Substance: AZTREONAM
     Indication: Product used for unknown indication
     Dosage: UNK UNK, QD
     Route: 065
  3. AMIKACIN [Suspect]
     Active Substance: AMIKACIN
     Indication: Bacteraemia
     Dosage: 1 INJECTION ON 06/06 AND 1 INJECTION ON 06/09/2022
     Route: 065
     Dates: start: 20220606, end: 20220609
  4. CEFOTAXIME [Suspect]
     Active Substance: CEFOTAXIME SODIUM
     Indication: Bacteraemia
     Route: 065
     Dates: start: 20220605, end: 20220608

REACTIONS (1)
  - Cholestasis [Recovering/Resolving]

NARRATIVE: CASE EVENT DATE: 20220611
